FAERS Safety Report 6547830-8 (Version None)
Quarter: 2010Q1

REPORT INFORMATION
  Report Type: 
  Country: None (occurrence: None)
  Receive Date: 20100124
  Receipt Date: 20091103
  Transmission Date: 20100710
  Serious: No
  Sender: FDA-Public Use
  Company Number: GB-ALEXION-A200900773

PATIENT

DRUGS (4)
  1. SOLIRIS [Suspect]
     Indication: PAROXYSMAL NOCTURNAL HAEMOGLOBINURIA
     Dosage: CLINICAL TRIAL E05-001
     Route: 042
  2. SOLIRIS [Suspect]
     Dosage: 900 MG, Q2W
     Route: 042
     Dates: start: 20051108
  3. SOLIRIS [Suspect]
     Dosage: 900 MG, Q12D
     Route: 042
     Dates: start: 20080101
  4. SOLIRIS [Suspect]
     Dosage: 900 MG, Q2W
     Route: 042

REACTIONS (2)
  - HAEMOLYSIS [None]
  - PREGNANCY [None]
